FAERS Safety Report 25081572 (Version 1)
Quarter: 2025Q1

REPORT INFORMATION
  Report Type: Spontaneous
  Country: CA (occurrence: CA)
  Receive Date: 20250316
  Receipt Date: 20250316
  Transmission Date: 20250409
  Serious: Yes (Other)
  Sender: HLS THERAPEUTICS
  Company Number: CA-HLS-202500449

PATIENT
  Age: 21 Year
  Sex: Male
  Weight: 50 kg

DRUGS (2)
  1. CLOZAPINE [Suspect]
     Active Substance: CLOZAPINE
     Indication: Schizophrenia
     Route: 048
  2. PALIPERIDONE [Concomitant]
     Active Substance: PALIPERIDONE
     Route: 030

REACTIONS (3)
  - Myocarditis [Recovered/Resolved]
  - Pericarditis [Recovered/Resolved]
  - Viral myocarditis [Recovered/Resolved]
